FAERS Safety Report 4390622-9 (Version None)
Quarter: 2004Q2

REPORT INFORMATION
  Report Type: 
  Country: None (occurrence: None)
  Receive Date: 20040628
  Receipt Date: 20040616
  Transmission Date: 20050107
  Serious: Yes (Death, Hospitalization)
  Sender: FDA-Public Use
  Company Number: S04-USA-00828-01

PATIENT
  Age: 88 Year
  Sex: Female
  Weight: 52.6173 kg

DRUGS (16)
  1. NAMENDA [Suspect]
     Indication: DEMENTIA
     Dosage: 5 MG QD PO
     Route: 048
     Dates: start: 20040204, end: 20040210
  2. NAMENDA [Suspect]
     Indication: DEMENTIA
     Dosage: 10 MG QD PO
     Route: 048
     Dates: start: 20040211, end: 20040217
  3. NAMENDA [Suspect]
     Indication: DEMENTIA
     Dosage: 15 MG QD PO
     Route: 048
     Dates: start: 20040218, end: 20040224
  4. NAMENDA [Suspect]
     Indication: DEMENTIA
     Dosage: 10 MG BID PO
     Route: 048
     Dates: start: 20040225, end: 20040101
  5. CLONIDINE HCL [Concomitant]
  6. COMBIVENT [Concomitant]
  7. CARDIZEM CD [Concomitant]
  8. FLONASE [Concomitant]
  9. ZAROXOLYN [Concomitant]
  10. MULTIVITAMIN WITH IRON [Concomitant]
  11. K-DUR 10 [Concomitant]
  12. SPIRONOLACTONE [Concomitant]
  13. SYNTHROID [Concomitant]
  14. TOPROL-XL [Concomitant]
  15. COUMADIN [Concomitant]
  16. ZOLOFT [Concomitant]

REACTIONS (3)
  - CONDITION AGGRAVATED [None]
  - MYOCARDIAL INFARCTION [None]
  - RENAL FAILURE [None]
